FAERS Safety Report 4267686-6 (Version None)
Quarter: 2004Q1

REPORT INFORMATION
  Report Type: 
  Country: None (occurrence: None)
  Receive Date: 20040109
  Receipt Date: 20040105
  Transmission Date: 20041129
  Serious: Yes (Disabling, Other)
  Sender: FDA-Public Use
  Company Number: PHFR2004GB00471

PATIENT
  Age: 42 Year
  Sex: Female

DRUGS (11)
  1. DICLOFENAC SODIUM [Suspect]
     Route: 065
  2. ECHINACEA [Suspect]
     Route: 048
  3. ADALAT [Suspect]
     Route: 065
  4. BENDROFLUAZIDE [Suspect]
     Route: 065
  5. BECLOMETHASONE DIPROPIONATE [Suspect]
     Route: 065
  6. CODEINE PHOSPHATE [Suspect]
     Route: 065
  7. DOTHIEPIN HYDROCHLORIDE [Suspect]
     Route: 065
  8. DOXAPRAM [Suspect]
     Route: 065
  9. IRON SULFATETHIAMIN COMPOUND TAB [Suspect]
     Route: 065
  10. SALBUTAMOL [Suspect]
     Route: 065
  11. TRANEXAMIC ACID [Suspect]
     Route: 065

REACTIONS (2)
  - COAGULOPATHY [None]
  - DRUG INTERACTION [None]
